FAERS Safety Report 17278739 (Version 1)
Quarter: 2020Q1

REPORT INFORMATION
  Report Type: Report from Study
  Country: CA (occurrence: CA)
  Receive Date: 20200116
  Receipt Date: 20200116
  Transmission Date: 20200409
  Serious: Yes (Other)
  Sender: FDA-Public Use
  Company Number: CA-PFIZER INC-2020015846

PATIENT
  Sex: Female

DRUGS (4)
  1. COSENTYX [Suspect]
     Active Substance: SECUKINUMAB
     Dosage: 300 MG, WEEKLY
     Route: 050
  2. ENBREL [Concomitant]
     Active Substance: ETANERCEPT
     Route: 050
  3. METHOTREXATE SODIUM. [Suspect]
     Active Substance: METHOTREXATE SODIUM
     Route: 050
  4. HUMIRA [Concomitant]
     Active Substance: ADALIMUMAB
     Route: 050

REACTIONS (4)
  - Throat tightness [Unknown]
  - Anaphylactic reaction [Unknown]
  - Exposure via partner [Unknown]
  - Urticaria [Unknown]
